FAERS Safety Report 7019627-6 (Version None)
Quarter: 2010Q3

REPORT INFORMATION
  Report Type: 
  Country: None (occurrence: None)
  Receive Date: 20100928
  Receipt Date: 20100928
  Transmission Date: 20110219
  Serious: No
  Sender: FDA-Public Use
  Company Number: None

PATIENT
  Age: 22 Year
  Sex: Female
  Weight: 68.0396 kg

DRUGS (1)
  1. ACCUTANE [Suspect]
     Indication: ACNE
     Dates: start: 19950601, end: 19960101

REACTIONS (4)
  - CYSTITIS INTERSTITIAL [None]
  - LIP DRY [None]
  - MYALGIA [None]
  - NASAL DRYNESS [None]
